FAERS Safety Report 17765379 (Version 1)
Quarter: 2020Q2

REPORT INFORMATION
  Report Type: Spontaneous
  Country: US (occurrence: US)
  Receive Date: 20200508
  Receipt Date: 20200508
  Transmission Date: 20200714
  Serious: Yes (Hospitalization)
  Sender: FDA-Public Use
  Company Number: None

PATIENT
  Age: 63 Year
  Sex: Male
  Weight: 95.4 kg

DRUGS (2)
  1. HEPARIN INFUSION [Concomitant]
     Dates: start: 20200426, end: 20200429
  2. APIXABAN [Suspect]
     Active Substance: APIXABAN
     Indication: DEEP VEIN THROMBOSIS
     Route: 048
     Dates: start: 20200430, end: 20200501

REACTIONS (3)
  - Cardio-respiratory arrest [None]
  - Pulmonary alveolar haemorrhage [None]
  - Cardiac failure [None]

NARRATIVE: CASE EVENT DATE: 20200502
